FAERS Safety Report 7549862-X (Version None)
Quarter: 2011Q2

REPORT INFORMATION
  Report Type: 
  Country: None (occurrence: None)
  Receive Date: 20110615
  Receipt Date: 20110531
  Transmission Date: 20111010
  Serious: No
  Sender: FDA-Public Use
  Company Number: US-B.I. PHARMACEUTICALS,INC./RIDGEFIELD-2011-BP-14339BP

PATIENT
  Age: 76 Year
  Sex: Male

DRUGS (10)
  1. METOPROLOL [Suspect]
     Indication: HYPERTENSION
     Dosage: 25 MG
     Route: 048
     Dates: start: 20101201
  2. ATIVAN [Concomitant]
     Indication: ANXIETY
     Dosage: 0.5 MG
     Route: 048
     Dates: start: 20101201
  3. METOPROLOL [Suspect]
     Indication: ATRIAL FIBRILLATION
  4. BYETTA [Concomitant]
     Indication: TYPE 2 DIABETES MELLITUS
     Dates: start: 20080101
  5. PLETAL [Concomitant]
     Indication: PAIN IN EXTREMITY
     Route: 048
     Dates: start: 20110101
  6. PRADAXA [Suspect]
     Indication: ATRIAL FIBRILLATION
     Dosage: 300 MG
     Route: 048
     Dates: start: 20110101
  7. CRESTOR [Concomitant]
     Indication: BLOOD CHOLESTEROL INCREASED
     Dosage: 20 MG
     Route: 048
     Dates: start: 20101001
  8. PLETAL [Concomitant]
     Indication: MUSCLE SPASMS
  9. LEXAPRO [Concomitant]
     Indication: DEPRESSION
     Dosage: 20 MG
     Route: 048
     Dates: start: 20100101, end: 20110401
  10. FLOMAX [Concomitant]
     Indication: PROSTATOMEGALY
     Dosage: 40 MG
     Route: 048
     Dates: start: 20060101

REACTIONS (2)
  - DIARRHOEA [None]
  - FATIGUE [None]
